FAERS Safety Report 4892675-8 (Version None)
Quarter: 2006Q1

REPORT INFORMATION
  Report Type: 
  Country: None (occurrence: None)
  Receive Date: 20060125
  Receipt Date: 20060125
  Transmission Date: 20060701
  Serious: No
  Sender: FDA-Public Use
  Company Number: None

PATIENT
  Sex: Male
  Weight: 77 kg

DRUGS (5)
  1. WARFARIN [Suspect]
     Indication: PERIPHERAL VASCULAR DISORDER
     Dosage: 10 MG PO DAILY
     Route: 048
     Dates: start: 20050925, end: 20051009
  2. NAPROXEN SODIUM [Concomitant]
  3. INDOMETHACIN [Concomitant]
  4. CILOSTAZOL [Concomitant]
  5. OXYCODONE AND ACETAMINOPHEN [Concomitant]

REACTIONS (5)
  - FAECES DISCOLOURED [None]
  - GASTRIC LAVAGE ABNORMAL [None]
  - HAEMORRHAGE [None]
  - INTERNATIONAL NORMALISED RATIO FLUCTUATION [None]
  - THROMBOSIS [None]
